FAERS Safety Report 4342371-0 (Version None)
Quarter: 2004Q2

REPORT INFORMATION
  Report Type: 
  Country: None (occurrence: None)
  Receive Date: 20040421
  Receipt Date: 20040414
  Transmission Date: 20050107
  Serious: Yes (Death)
  Sender: FDA-Public Use
  Company Number: PHBS2004JP05066

PATIENT
  Age: 55 Year
  Sex: Male

DRUGS (2)
  1. NEORAL [Suspect]
     Indication: BONE MARROW TRANSPLANT
     Dosage: 6.25 MG/KG, BID
     Route: 048
  2. MYCOPHENOLATE MOFETIL [Suspect]
     Indication: BONE MARROW TRANSPLANT
     Dosage: 30 MG/KG/D
     Route: 048

REACTIONS (1)
  - MENINGOENCEPHALITIS HERPETIC [None]
